FAERS Safety Report 7714795-2 (Version None)
Quarter: 2011Q3

REPORT INFORMATION
  Report Type: 
  Country: None (occurrence: None)
  Receive Date: 20110829
  Receipt Date: 20110822
  Transmission Date: 20111222
  Serious: Yes (Life-Threatening, Hospitalization, Other)
  Sender: FDA-Public Use
  Company Number: US-BAYER-201021624NA

PATIENT
  Sex: Female
  Weight: 87.528 kg

DRUGS (11)
  1. CONCERTA [Concomitant]
     Dosage: 54 MG, QD
  2. YAZ [Suspect]
     Indication: MENSTRUAL CYCLE MANAGEMENT
     Dosage: UNK UNK, QD
     Route: 048
     Dates: start: 20090601, end: 20091101
  3. MAXALT [Concomitant]
     Dosage: UNK
     Dates: start: 20090401, end: 20090501
  4. NASONEX [Concomitant]
  5. LORTAB [Concomitant]
  6. PRILOSEC [Concomitant]
     Dosage: 20 MG, BID
  7. YAZ [Suspect]
     Indication: PREMENSTRUAL SYNDROME
     Dosage: UNK
     Dates: start: 20090601, end: 20091101
  8. LORATADINE [Concomitant]
  9. SINGULAIR [Concomitant]
     Dosage: 10 MG, QD
  10. BENTYL [Concomitant]
     Dosage: UNK
     Dates: start: 20090301, end: 20091101
  11. PHENERGAN HCL [Concomitant]
     Dosage: UNK
     Dates: start: 20090301

REACTIONS (3)
  - CHOLECYSTITIS CHRONIC [None]
  - GALLBLADDER DISORDER [None]
  - PAIN [None]
